FAERS Safety Report 22663561 (Version 3)
Quarter: 2024Q3

REPORT INFORMATION
  Report Type: Spontaneous
  Country: BR (occurrence: BR)
  Receive Date: 20230703
  Receipt Date: 20240904
  Transmission Date: 20241017
  Serious: Yes (Other)
  Sender: NOVO NORDISK
  Company Number: BR-NOVOPROD-1082491

PATIENT
  Age: 741 Month
  Sex: Male
  Weight: 67 kg

DRUGS (4)
  1. OZEMPIC [Suspect]
     Active Substance: SEMAGLUTIDE
     Dosage: 0.5 MG, QW
     Route: 058
  2. OZEMPIC [Suspect]
     Active Substance: SEMAGLUTIDE
     Indication: Type 2 diabetes mellitus
     Dosage: 0.25 MG, QW
     Route: 058
  3. METFORMIN HYDROCHLORIDE [Concomitant]
     Active Substance: METFORMIN HYDROCHLORIDE
     Indication: Type 2 diabetes mellitus
     Dosage: 500 MG, TID
     Dates: start: 2021
  4. ZETIA [Concomitant]
     Active Substance: EZETIMIBE
     Indication: Low density lipoprotein increased
     Dosage: 10 MG, QD

REACTIONS (6)
  - Cholecystitis [Recovered/Resolved]
  - Clear cell renal cell carcinoma [Recovered/Resolved]
  - Cholelithiasis [Recovered/Resolved]
  - Blood glucose increased [Unknown]
  - Gastrooesophageal reflux disease [Recovered/Resolved]
  - Off label use [Unknown]

NARRATIVE: CASE EVENT DATE: 20220322
